FAERS Safety Report 9967670 (Version 2)
Quarter: 2015Q4

REPORT INFORMATION
  Report Type: Report from Study
  Country: US (occurrence: US)
  Receive Date: 20140305
  Receipt Date: 20151116
  Transmission Date: 20160305
  Serious: Yes (Hospitalization)
  Sender: FDA-Public Use
  Company Number: US-ROCHE-1347400

PATIENT
  Age: 88 Year
  Sex: Male

DRUGS (6)
  1. AVASTIN [Suspect]
     Active Substance: BEVACIZUMAB
     Indication: PRODUCT USED FOR UNKNOWN INDICATION
     Dosage: OS
     Route: 065
     Dates: start: 20111007
  2. COUMADIN [Concomitant]
     Active Substance: WARFARIN SODIUM
  3. MYDRIACYL [Concomitant]
     Active Substance: TROPICAMIDE
     Route: 065
  4. ASA [Concomitant]
     Active Substance: ASPIRIN
     Route: 065
  5. PLAVIX [Concomitant]
     Active Substance: CLOPIDOGREL BISULFATE
  6. LUCENTIS [Suspect]
     Active Substance: RANIBIZUMAB
     Indication: NEOVASCULAR AGE-RELATED MACULAR DEGENERATION
     Route: 050
     Dates: start: 20111116

REACTIONS (5)
  - Visual acuity reduced [Unknown]
  - Eye pain [Unknown]
  - Foot fracture [Unknown]
  - Drug ineffective [Unknown]
  - Asthenopia [Unknown]

NARRATIVE: CASE EVENT DATE: 20120125
